FAERS Safety Report 6266388-4 (Version None)
Quarter: 2009Q3

REPORT INFORMATION
  Report Type: 
  Country: None (occurrence: None)
  Receive Date: 20090713
  Receipt Date: 20090708
  Transmission Date: 20100115
  Serious: Yes (Death)
  Sender: FDA-Public Use
  Company Number: LB-JNJFOC-20090703292

PATIENT
  Age: 23 Year
  Sex: Male
  Weight: 82 kg

DRUGS (5)
  1. INVEGA [Suspect]
     Route: 048
  2. INVEGA [Suspect]
     Indication: SCHIZOPHRENIA
     Route: 048
  3. RISPERDAL [Suspect]
     Route: 048
  4. RISPERDAL [Suspect]
     Indication: SCHIZOPHRENIA
     Route: 048
  5. CHLORPROMAZINE [Concomitant]
     Indication: INSOMNIA

REACTIONS (4)
  - AGITATION [None]
  - COMPLETED SUICIDE [None]
  - INSOMNIA [None]
  - PARANOIA [None]
